FAERS Safety Report 12633304 (Version 2)
Quarter: 2016Q3

REPORT INFORMATION
  Report Type: Spontaneous
  Country: US (occurrence: US)
  Receive Date: 20160808
  Receipt Date: 20160808
  Transmission Date: 20161109
  Serious: No
  Sender: FDA-Public Use
  Company Number: US-BEH-2016060450

PATIENT
  Sex: Female
  Weight: 73 kg

DRUGS (42)
  1. COUMADIN [Concomitant]
     Active Substance: WARFARIN SODIUM
  2. METHOTREXATE. [Concomitant]
     Active Substance: METHOTREXATE
  3. CIPROFLOXACIN. [Concomitant]
     Active Substance: CIPROFLOXACIN
  4. WARFARIN [Concomitant]
     Active Substance: WARFARIN
  5. HUMALOG [Concomitant]
     Active Substance: INSULIN LISPRO
  6. PRILCARPINE [Concomitant]
  7. PRAVASTATIN. [Concomitant]
     Active Substance: PRAVASTATIN
  8. MOBIC [Concomitant]
     Active Substance: MELOXICAM
  9. BACTRIM [Concomitant]
     Active Substance: SULFAMETHOXAZOLE\TRIMETHOPRIM
  10. CLARINEX [Concomitant]
     Active Substance: DESLORATADINE
  11. ONDANSTERONE [Concomitant]
  12. LORAZEPAM. [Concomitant]
     Active Substance: LORAZEPAM
  13. FOLIC ACID. [Concomitant]
     Active Substance: FOLIC ACID
  14. MULTIVITAMIN [Concomitant]
     Active Substance: VITAMINS
  15. ACIPHILOUS [Concomitant]
  16. DIPHENHYDRAMINE. [Concomitant]
     Active Substance: DIPHENHYDRAMINE
  17. LEVAQUIN [Concomitant]
     Active Substance: LEVOFLOXACIN
  18. SUSTANE EYE DROP [Concomitant]
  19. PREDNISONE. [Concomitant]
     Active Substance: PREDNISONE
  20. DESPIRAMINE [Concomitant]
  21. LIALDA [Concomitant]
     Active Substance: MESALAMINE
  22. LANTUS [Concomitant]
     Active Substance: INSULIN GLARGINE
  23. B-50 BALANCED TABLET [Concomitant]
  24. AMRIX [Concomitant]
     Active Substance: CYCLOBENZAPRINE HYDROCHLORIDE
  25. BENADRYL [Concomitant]
     Active Substance: DIPHENHYDRAMINE HYDROCHLORIDE
  26. FENTANYL. [Concomitant]
     Active Substance: FENTANYL
  27. FLUCONAZOLE. [Concomitant]
     Active Substance: FLUCONAZOLE
  28. WELLBUTRIN [Concomitant]
     Active Substance: BUPROPION HYDROCHLORIDE
  29. LOVAZA [Concomitant]
     Active Substance: OMEGA-3-ACID ETHYL ESTERS
  30. OMEPRAZOLE. [Concomitant]
     Active Substance: OMEPRAZOLE
  31. COMBIVENT [Concomitant]
     Active Substance: ALBUTEROL SULFATE\IPRATROPIUM BROMIDE
  32. HIZENTRA [Suspect]
     Active Substance: HUMAN IMMUNOGLOBULIN G
     Indication: IMMUNODEFICIENCY COMMON VARIABLE
     Route: 058
     Dates: start: 20131015
  33. VITAMIN D [Concomitant]
     Active Substance: CHOLECALCIFEROL
  34. PULMICORT TURBUHALER [Concomitant]
     Active Substance: BUDESONIDE
  35. EPIPEN [Concomitant]
     Active Substance: EPINEPHRINE
  36. BEPREVE [Concomitant]
     Active Substance: BEPOTASTINE BESILATE
  37. HUMALOG [Concomitant]
     Active Substance: INSULIN LISPRO
  38. MAXALT [Concomitant]
     Active Substance: RIZATRIPTAN BENZOATE
  39. LISINOPRIL. [Concomitant]
     Active Substance: LISINOPRIL
  40. CYMBALTA [Concomitant]
     Active Substance: DULOXETINE HYDROCHLORIDE
  41. MEDROL [Concomitant]
     Active Substance: METHYLPREDNISOLONE
  42. OMNARIS [Concomitant]
     Active Substance: CICLESONIDE

REACTIONS (1)
  - Sinusitis [Unknown]
